FAERS Safety Report 6134408-3 (Version None)
Quarter: 2009Q1

REPORT INFORMATION
  Report Type: 
  Country: None (occurrence: None)
  Receive Date: 20090327
  Receipt Date: 20090320
  Transmission Date: 20090719
  Serious: Yes (Other)
  Sender: FDA-Public Use
  Company Number: US-JNJFOC-20090305600

PATIENT
  Age: 17 Year
  Sex: Female
  Weight: 56.7 kg

DRUGS (3)
  1. CONCERTA [Suspect]
     Dosage: 54 AND 36 MG
     Route: 048
  2. CONCERTA [Suspect]
     Indication: ATTENTION DEFICIT/HYPERACTIVITY DISORDER
     Route: 048
  3. MINOCIN [Suspect]
     Indication: CONTRACEPTION
     Route: 048

REACTIONS (5)
  - CHEST DISCOMFORT [None]
  - DYSPNOEA [None]
  - PALPITATIONS [None]
  - SINUS ARRHYTHMIA [None]
  - TACHYCARDIA [None]
